FAERS Safety Report 6137749-9 (Version None)
Quarter: 2009Q1

REPORT INFORMATION
  Report Type: 
  Country: None (occurrence: None)
  Receive Date: 20090327
  Receipt Date: 20090313
  Transmission Date: 20090719
  Serious: Yes (Hospitalization)
  Sender: FDA-Public Use
  Company Number: 2009S1004480

PATIENT
  Age: 53 Year
  Sex: Male

DRUGS (8)
  1. AMLODIPINE BESYLATE [Suspect]
     Dosage: 15 MG; DAILY; ORAL
     Route: 048
     Dates: start: 20090110, end: 20090121
  2. LASIX [Concomitant]
  3. OXYCODONE HCL [Concomitant]
  4. CLARINEX [Concomitant]
  5. NASACORT [Concomitant]
  6. SOMA [Concomitant]
  7. LACTOLOSE [Concomitant]
  8. ZOFRAN [Concomitant]

REACTIONS (9)
  - ASTHENIA [None]
  - DIZZINESS [None]
  - DRUG DISPENSING ERROR [None]
  - DYSPNOEA [None]
  - INFLUENZA [None]
  - OEDEMA PERIPHERAL [None]
  - PLEURAL EFFUSION [None]
  - PYREXIA [None]
  - VOMITING [None]
